FAERS Safety Report 16326134 (Version 1)
Quarter: 2019Q2

REPORT INFORMATION
  Report Type: Spontaneous
  Country: US (occurrence: US)
  Receive Date: 20190517
  Receipt Date: 20190517
  Transmission Date: 20190711
  Serious: No
  Sender: FDA-Public Use
  Company Number: US-ACTELION-A-NJ2019-189718

PATIENT
  Age: 76 Year
  Sex: Male

DRUGS (8)
  1. OPSUMIT [Suspect]
     Active Substance: MACITENTAN
     Indication: PULMONARY ARTERIAL HYPERTENSION
     Dosage: 10 MG, QD
     Route: 048
     Dates: start: 20181129
  2. OMEPRAZOLE. [Concomitant]
     Active Substance: OMEPRAZOLE
     Dosage: 20 MG, QD
  3. TADALAFIL. [Interacting]
     Active Substance: TADALAFIL
     Indication: PULMONARY ARTERIAL HYPERTENSION
     Dosage: 20 MG, QD
     Route: 065
     Dates: start: 20190108
  4. SOTALOL. [Concomitant]
     Active Substance: SOTALOL
     Dosage: 40 MG, BID
  5. UPTRAVI [Interacting]
     Active Substance: SELEXIPAG
     Indication: PULMONARY ARTERIAL HYPERTENSION
     Dosage: 200 MG, BID
     Route: 048
     Dates: start: 20190409
  6. LEVOTHYROXINE. [Concomitant]
     Active Substance: LEVOTHYROXINE
     Dosage: 88 MCG
  7. WARFARIN [Concomitant]
     Active Substance: WARFARIN
     Dosage: 1 MG X 4 DAYS 1/2 TAB X 3 DAYS
  8. ATORVASTATIN [Concomitant]
     Active Substance: ATORVASTATIN
     Dosage: UNK MG, PRN

REACTIONS (4)
  - Drug interaction [Unknown]
  - Headache [Recovering/Resolving]
  - Peripheral swelling [Not Recovered/Not Resolved]
  - Nasal congestion [Recovering/Resolving]

NARRATIVE: CASE EVENT DATE: 201904
